FAERS Safety Report 23200986 (Version 1)
Quarter: 2023Q4

REPORT INFORMATION
  Report Type: Spontaneous
  Country: US (occurrence: US)
  Receive Date: 20231118
  Receipt Date: 20231118
  Transmission Date: 20240110
  Serious: Yes (Other)
  Sender: FDA-Public Use
  Company Number: US-ABBVIE-5493886

PATIENT
  Sex: Female

DRUGS (1)
  1. LILETTA [Suspect]
     Active Substance: LEVONORGESTREL
     Indication: Product used for unknown indication
     Dosage: TIME INTERVAL: AS NECESSARY
     Route: 015
     Dates: start: 2022

REACTIONS (12)
  - Uterine leiomyoma [Not Recovered/Not Resolved]
  - Uterine enlargement [Not Recovered/Not Resolved]
  - Pain [Unknown]
  - Gait disturbance [Unknown]
  - Anxiety [Unknown]
  - Impaired work ability [Unknown]
  - Unevaluable event [Not Recovered/Not Resolved]
  - Alopecia [Unknown]
  - Pelvic pain [Unknown]
  - Weight increased [Unknown]
  - Abdominal distension [Unknown]
  - Hair growth abnormal [Unknown]

NARRATIVE: CASE EVENT DATE: 20231110
